FAERS Safety Report 6557605-1 (Version None)
Quarter: 2010Q1

REPORT INFORMATION
  Report Type: 
  Country: None (occurrence: None)
  Receive Date: 20100129
  Receipt Date: 20100125
  Transmission Date: 20100710
  Serious: Yes (Death, Hospitalization, Other)
  Sender: FDA-Public Use
  Company Number: PHHY2010AT04467

PATIENT
  Age: 68 Year
  Sex: Male

DRUGS (3)
  1. MYCOPHENOLATE MOFETIL [Suspect]
     Indication: RENAL TRANSPLANT
  2. TACROLIMUS [Suspect]
     Indication: RENAL TRANSPLANT
  3. PREDNISOLONE [Suspect]
     Indication: RENAL TRANSPLANT

REACTIONS (12)
  - BLINDNESS [None]
  - BRONCHOPNEUMONIA [None]
  - BRONCHOPULMONARY ASPERGILLOSIS [None]
  - C-REACTIVE PROTEIN INCREASED [None]
  - CARDIOPULMONARY FAILURE [None]
  - CEREBRAL ASPERGILLOSIS [None]
  - DISTURBANCE IN ATTENTION [None]
  - EYELID PTOSIS [None]
  - OPHTHALMOPLEGIA [None]
  - PYREXIA [None]
  - SEPSIS [None]
  - SINUSITIS ASPERGILLUS [None]
